FAERS Safety Report 9353404 (Version 1)
Quarter: 2013Q2

REPORT INFORMATION
  Report Type: Spontaneous
  Country: FR (occurrence: FR)
  Receive Date: 20130618
  Receipt Date: 20130618
  Transmission Date: 20140414
  Serious: Yes (Hospitalization, Other)
  Sender: FDA-Public Use
  Company Number: FR-JNJFOC-20130603022

PATIENT
  Age: 73 Year
  Sex: Male

DRUGS (5)
  1. STELARA [Suspect]
     Indication: PSORIASIS
     Route: 058
     Dates: start: 201109, end: 201211
  2. XEROQUEL [Suspect]
     Indication: BIPOLAR DISORDER
     Route: 065
     Dates: end: 201211
  3. PROPRANOLOL [Concomitant]
     Route: 065
  4. CYMBALTA [Concomitant]
     Route: 065
  5. ZOPLICONE [Concomitant]
     Route: 065

REACTIONS (6)
  - Sigmoiditis [Recovering/Resolving]
  - Abscess intestinal [Recovering/Resolving]
  - Enterovesical fistula [Recovering/Resolving]
  - Sepsis [Recovering/Resolving]
  - Renal failure acute [Recovering/Resolving]
  - Peritonitis [Recovering/Resolving]
